FAERS Safety Report 8473762-4 (Version None)
Quarter: 2012Q2

REPORT INFORMATION
  Report Type: 
  Country: None (occurrence: None)
  Receive Date: 20120628
  Receipt Date: 20111114
  Transmission Date: 20120825
  Serious: Yes (Death)
  Sender: FDA-Public Use
  Company Number: US-MYLANLABS-2011S1022144

PATIENT
  Age: 77 Year
  Sex: Male

DRUGS (15)
  1. PROVERA [Concomitant]
  2. MIDODRINE HYDROCHLORIDE [Concomitant]
  3. MULTI-VITAMINS [Concomitant]
  4. CLOZAPINE [Suspect]
     Indication: HALLUCINATION
     Route: 048
     Dates: end: 20110919
  5. ARICEPT [Concomitant]
  6. CELEXA [Concomitant]
  7. THERMOTABS [Concomitant]
  8. CALCIUM 600 PLUS VITAMIN D [Concomitant]
  9. ALBUTEROL SULFATE [Concomitant]
  10. CLOZAPINE [Suspect]
     Indication: AGGRESSION
     Route: 048
     Dates: end: 20110919
  11. COMTAN [Concomitant]
  12. PRAMIPEXOLE DIHYDROCHLORIDE [Concomitant]
  13. ATIVAN [Concomitant]
     Dosage: 3X PRN
  14. CLOZAPINE [Suspect]
     Indication: ABNORMAL BEHAVIOUR
     Route: 048
     Dates: end: 20110919
  15. SINEMET [Concomitant]
     Dosage: 25/100MG 5X/DAY

REACTIONS (1)
  - FALL [None]
